FAERS Safety Report 5359471-9 (Version None)
Quarter: 2007Q2

REPORT INFORMATION
  Report Type: 
  Country: None (occurrence: None)
  Receive Date: 20070615
  Receipt Date: 20070604
  Transmission Date: 20071010
  Serious: Yes (Other)
  Sender: FDA-Public Use
  Company Number: US-PFIZER INC-2007045960

PATIENT
  Sex: Female

DRUGS (3)
  1. CELEBREX [Suspect]
  2. BEXTRA [Suspect]
     Indication: ARTHRALGIA
  3. VIOXX [Suspect]

REACTIONS (4)
  - RASH [None]
  - RENAL CYST [None]
  - RENAL FAILURE ACUTE [None]
  - RENAL FAILURE CHRONIC [None]
